FAERS Safety Report 7043492-4 (Version None)
Quarter: 2010Q4

REPORT INFORMATION
  Report Type: 
  Country: None (occurrence: None)
  Receive Date: 20101013
  Receipt Date: 20101007
  Transmission Date: 20110411
  Serious: Yes (Hospitalization)
  Sender: FDA-Public Use
  Company Number: US-GILEAD-2010-0032338

PATIENT
  Sex: Female
  Weight: 122.58 kg

DRUGS (11)
  1. LETAIRIS [Suspect]
     Indication: PULMONARY ARTERIAL HYPERTENSION
     Route: 048
     Dates: start: 20100628
  2. COUMADIN [Concomitant]
  3. FUROSEMIDE [Concomitant]
  4. CELEXA [Concomitant]
  5. LANOXIN [Concomitant]
  6. REQUIP [Concomitant]
  7. SPIRIVA [Concomitant]
  8. SYNTHROID [Concomitant]
  9. TENORMIN [Concomitant]
  10. VICODIN [Concomitant]
  11. VITAMIN D [Concomitant]

REACTIONS (1)
  - HEART RATE DECREASED [None]
